FAERS Safety Report 15963041 (Version 6)
Quarter: 2020Q1

REPORT INFORMATION
  Report Type: Spontaneous
  Country: US (occurrence: US)
  Receive Date: 20190214
  Receipt Date: 20200204
  Transmission Date: 20200409
  Serious: Yes (Other)
  Sender: FDA-Public Use
  Company Number: US-ASTRAZENECA-2018SF13634

PATIENT
  Age: 440 Month
  Sex: Female
  Weight: 141.5 kg

DRUGS (47)
  1. XANAX [Concomitant]
     Active Substance: ALPRAZOLAM
  2. VANCOMYCIN [Concomitant]
     Active Substance: VANCOMYCIN
  3. SENOKOT [Concomitant]
     Active Substance: SENNOSIDES
  4. DIVALPROEX [Concomitant]
     Active Substance: DIVALPROEX SODIUM
  5. PRILOSEC [Suspect]
     Active Substance: OMEPRAZOLE MAGNESIUM
     Indication: GASTROOESOPHAGEAL REFLUX DISEASE
     Route: 048
     Dates: start: 20080213, end: 20171104
  6. EUCERIN [Concomitant]
     Active Substance: ENSULIZOLE\EUCERIN\OCTINOXATE\OCTISALATE\TITANIUM DIOXIDE\ZINC OXIDE
  7. LANSOPRAZOLE. [Concomitant]
     Active Substance: LANSOPRAZOLE
  8. LORATADINE. [Concomitant]
     Active Substance: LORATADINE
  9. TEMAZEPAM. [Concomitant]
     Active Substance: TEMAZEPAM
  10. ZOFRAN [Concomitant]
     Active Substance: ONDANSETRON HYDROCHLORIDE
  11. CYCLOBENZAPRINE. [Concomitant]
     Active Substance: CYCLOBENZAPRINE
  12. PRILOSEC OTC [Suspect]
     Active Substance: OMEPRAZOLE MAGNESIUM
     Indication: GASTROOESOPHAGEAL REFLUX DISEASE
     Route: 048
     Dates: start: 200611, end: 201711
  13. CLARITIN [Concomitant]
     Active Substance: LORATADINE
  14. NYSTATIN. [Concomitant]
     Active Substance: NYSTATIN
  15. REGLAN [Concomitant]
     Active Substance: METOCLOPRAMIDE HYDROCHLORIDE
  16. PRILOSEC [Suspect]
     Active Substance: OMEPRAZOLE MAGNESIUM
     Indication: GASTROOESOPHAGEAL REFLUX DISEASE
     Dosage: GENERIC
     Route: 065
     Dates: start: 201706
  17. FLEXERIL [Concomitant]
     Active Substance: CYCLOBENZAPRINE HYDROCHLORIDE
  18. NEURONTIN [Concomitant]
     Active Substance: GABAPENTIN
  19. ALBUTEROL. [Concomitant]
     Active Substance: ALBUTEROL
  20. LORATADINE. [Concomitant]
     Active Substance: LORATADINE
  21. PAROXETINE. [Concomitant]
     Active Substance: PAROXETINE
  22. DULOXETIN [Concomitant]
     Active Substance: DULOXETINE
  23. PRILOSEC [Suspect]
     Active Substance: OMEPRAZOLE MAGNESIUM
     Indication: GASTROOESOPHAGEAL REFLUX DISEASE
     Route: 048
     Dates: start: 20080213, end: 20171104
  24. PROTONIX [Suspect]
     Active Substance: PANTOPRAZOLE SODIUM
     Indication: GASTROOESOPHAGEAL REFLUX DISEASE
     Dosage: 1 X
     Route: 065
  25. PROZAC [Concomitant]
     Active Substance: FLUOXETINE HYDROCHLORIDE
  26. FLOVENT [Concomitant]
     Active Substance: FLUTICASONE PROPIONATE
  27. MOXIFLOXACIN. [Concomitant]
     Active Substance: MOXIFLOXACIN
  28. PAXIL [Concomitant]
     Active Substance: PAROXETINE HYDROCHLORIDE
  29. SYNTHROID [Concomitant]
     Active Substance: LEVOTHYROXINE SODIUM
  30. CALCITRIOL. [Concomitant]
     Active Substance: CALCITRIOL
  31. PRILOSEC [Suspect]
     Active Substance: OMEPRAZOLE MAGNESIUM
     Indication: GASTROOESOPHAGEAL REFLUX DISEASE
     Dosage: GENERIC
     Route: 065
     Dates: start: 20111213
  32. PROTONIX [Suspect]
     Active Substance: PANTOPRAZOLE SODIUM
     Route: 065
     Dates: start: 200901, end: 20091118
  33. FLONASE [Concomitant]
     Active Substance: FLUTICASONE PROPIONATE
  34. TRAZODONE [Concomitant]
     Active Substance: TRAZODONE HYDROCHLORIDE
  35. ACETAMINOPHEN. [Concomitant]
     Active Substance: ACETAMINOPHEN
  36. MIRALAX [Concomitant]
     Active Substance: POLYETHYLENE GLYCOL 3350
  37. MUCINEX [Concomitant]
     Active Substance: GUAIFENESIN
  38. MS CONTIN [Concomitant]
     Active Substance: MORPHINE SULFATE
  39. SINGULAIR [Concomitant]
     Active Substance: MONTELUKAST SODIUM
  40. ROXICET [Concomitant]
     Active Substance: ACETAMINOPHEN\OXYCODONE HYDROCHLORIDE
  41. RESTORIL [Concomitant]
     Active Substance: TEMAZEPAM
  42. DOCUSATE [Concomitant]
     Active Substance: DOCUSATE
  43. KLONOPIN [Concomitant]
     Active Substance: CLONAZEPAM
  44. TUMS [Concomitant]
     Active Substance: CALCIUM CARBONATE
  45. EFFEXOR [Concomitant]
     Active Substance: VENLAFAXINE HYDROCHLORIDE
  46. MONTELUKAST [Concomitant]
     Active Substance: MONTELUKAST SODIUM
  47. DEPAKOTE [Concomitant]
     Active Substance: DIVALPROEX SODIUM

REACTIONS (5)
  - Nephrogenic anaemia [Unknown]
  - Acute kidney injury [Not Recovered/Not Resolved]
  - Renal injury [Unknown]
  - Chronic kidney disease [Not Recovered/Not Resolved]
  - Renal failure [Unknown]

NARRATIVE: CASE EVENT DATE: 200806
